FAERS Safety Report 8818908 (Version 1)
Quarter: 2012Q4

REPORT INFORMATION
  Report Type: Spontaneous
  Country: CN (occurrence: None)
  Receive Date: 20121002
  Receipt Date: 20121002
  Transmission Date: 20130627
  Serious: Yes (Life-Threatening, Hospitalization, Other)
  Sender: FDA-Public Use
  Company Number: 2012P1060035

PATIENT
  Age: 94 Year
  Sex: Male
  Weight: 49.9 kg

DRUGS (5)
  1. CEFTAZIDIME [Suspect]
     Indication: INFECTION PROPHYLAXIS
     Route: 042
     Dates: start: 20090105, end: 20090106
  2. ASPIRIN [Concomitant]
  3. CLOPIDOGREL [Concomitant]
  4. NITROGLYCERINE [Concomitant]
  5. HUMAN INSULIN [Concomitant]

REACTIONS (4)
  - Biliary tract infection [None]
  - Cardiac arrest [None]
  - Respiratory failure [None]
  - Thrombocytopenia [None]
